FAERS Safety Report 4414217-3 (Version None)
Quarter: 2004Q2

REPORT INFORMATION
  Report Type: 
  Country: None (occurrence: None)
  Receive Date: 20040630
  Receipt Date: 20040525
  Transmission Date: 20050107
  Serious: No
  Sender: FDA-Public Use
  Company Number: 04P-163-0262007-00

PATIENT
  Age: 56 Year
  Sex: Female
  Weight: 74.8435 kg

DRUGS (16)
  1. HUMIRA [Suspect]
     Indication: RHEUMATOID ARTHRITIS
     Dosage: 40 MG, 1 IN 2 WK, SUBCUTANEOUS
     Route: 058
     Dates: start: 20030101
  2. INSULIN GLARGINE [Concomitant]
  3. GABAPENTIN [Concomitant]
  4. POTASSIUM [Concomitant]
  5. CELECOXIB [Concomitant]
  6. FOLIC ACID [Concomitant]
  7. OXYCODONE HCL [Concomitant]
  8. CAPTOPRIL [Concomitant]
  9. LEVOTHYROXINE SODIUM [Concomitant]
  10. PREDNISONE TAB [Concomitant]
  11. HYDROXYCHLOROQUINE PHOSPHATE [Concomitant]
  12. GLUCOPHAGE [Concomitant]
  13. ALENDRONATE SODIUM [Concomitant]
  14. CITALOPRAM HYDROBROMIDE [Concomitant]
  15. MULTI-VITAMINS [Concomitant]
  16. METHOTREXATE [Concomitant]

REACTIONS (2)
  - INJECTION SITE BURNING [None]
  - URINARY TRACT INFECTION [None]
